FAERS Safety Report 9117837 (Version 1)
Quarter: 2013Q1

REPORT INFORMATION
  Report Type: Spontaneous
  Country: US (occurrence: US)
  Receive Date: 20130128
  Receipt Date: 20130128
  Transmission Date: 20140127
  Serious: Yes (Hospitalization)
  Sender: FDA-Public Use
  Company Number: US-SANOFI-AVENTIS-2013SA005662

PATIENT
  Age: 66 Year
  Sex: Female

DRUGS (1)
  1. AMBIEN [Suspect]

REACTIONS (3)
  - Road traffic accident [Unknown]
  - Limb injury [Unknown]
  - Dyspnoea [Unknown]
